FAERS Safety Report 14583415 (Version 4)
Quarter: 2018Q2

REPORT INFORMATION
  Report Type: Report from Study
  Country: None (occurrence: US)
  Receive Date: 20180228
  Receipt Date: 20180413
  Transmission Date: 20180711
  Serious: Yes (Hospitalization)
  Sender: FDA-Public Use
  Company Number: US-BAUSCH-BL-2018-005589

PATIENT
  Age: 54 Year
  Sex: Female

DRUGS (5)
  1. XENAZINE [Suspect]
     Active Substance: TETRABENAZINE
     Route: 048
     Dates: start: 20180323
  2. XENAZINE [Suspect]
     Active Substance: TETRABENAZINE
     Indication: HUNTINGTON^S DISEASE
     Route: 048
     Dates: start: 20121025
  3. XENAZINE [Suspect]
     Active Substance: TETRABENAZINE
     Dosage: IN DIVIDED DOSES DAILY
     Route: 048
     Dates: start: 20160825, end: 20180226
  4. XENAZINE [Suspect]
     Active Substance: TETRABENAZINE
     Route: 048
     Dates: start: 20180323
  5. HUMIRA [Concomitant]
     Active Substance: ADALIMUMAB
     Indication: PRODUCT USED FOR UNKNOWN INDICATION
     Dates: start: 2016

REACTIONS (2)
  - Infection [Unknown]
  - Brain abscess [Unknown]

NARRATIVE: CASE EVENT DATE: 201803
